FAERS Safety Report 9955836 (Version 1)
Quarter: 2014Q1

REPORT INFORMATION
  Report Type: Report from Study
  Country: NL (occurrence: NL)
  Receive Date: 20140304
  Receipt Date: 20140304
  Transmission Date: 20141002
  Serious: Yes (Death)
  Sender: FDA-Public Use
  Company Number: PHHY2014NL026672

PATIENT
  Sex: Male

DRUGS (2)
  1. TOBI [Suspect]
     Indication: CHRONIC OBSTRUCTIVE PULMONARY DISEASE
     Dosage: 28 DAYS SHEDULE
  2. TOBI [Suspect]
     Indication: BRONCHIECTASIS

REACTIONS (1)
  - Death [Fatal]
